FAERS Safety Report 6143588-5 (Version None)
Quarter: 2009Q2

REPORT INFORMATION
  Report Type: 
  Country: None (occurrence: None)
  Receive Date: 20090403
  Receipt Date: 20090326
  Transmission Date: 20091009
  Serious: Yes (Other)
  Sender: FDA-Public Use
  Company Number: GB-ASTRAZENECA-2009GB00754

PATIENT
  Age: 24 Year
  Sex: Female

DRUGS (3)
  1. MEROPENEM [Suspect]
     Indication: LOWER RESPIRATORY TRACT INFECTION
     Dosage: DOSE STATED AS 2 G
     Route: 042
     Dates: start: 20090209, end: 20090227
  2. TOBRAMYCIN [Concomitant]
     Dosage: DOSE REPORTED AS 4 ML
     Route: 042
     Dates: start: 20090209
  3. MULTIPLE MEDICATIONS FOR CYSTIC FIBROSIS [Concomitant]

REACTIONS (1)
  - EOSINOPHILIA [None]
